FAERS Safety Report 21813746 (Version 1)
Quarter: 2023Q1

REPORT INFORMATION
  Report Type: Spontaneous
  Country: CA (occurrence: CA)
  Receive Date: 20230104
  Receipt Date: 20230104
  Transmission Date: 20230418
  Serious: Yes (Hospitalization, Disabling)
  Sender: FDA-Public Use
  Company Number: CA-002147023-NVSC2022CA300804

PATIENT
  Age: 33 Year
  Sex: Male

DRUGS (1)
  1. CIPROFLOXACIN [Suspect]
     Active Substance: CIPROFLOXACIN
     Indication: Prostatitis
     Dosage: 500 MG, BID ( TWICE A DAY)
     Route: 065
     Dates: start: 20221024, end: 20221104

REACTIONS (7)
  - Palpitations [Unknown]
  - Panic attack [Unknown]
  - Neck pain [Unknown]
  - Anxiety [Unknown]
  - Tinnitus [Unknown]
  - Dizziness [Not Recovered/Not Resolved]
  - Arthralgia [Unknown]

NARRATIVE: CASE EVENT DATE: 20221025
